FAERS Safety Report 22283505 (Version 1)
Quarter: 2023Q2

REPORT INFORMATION
  Report Type: Spontaneous
  Country: CN (occurrence: None)
  Receive Date: 20230504
  Receipt Date: 20230504
  Transmission Date: 20230722
  Serious: Yes (Other)
  Sender: FDA-Public Use
  Company Number: 2023A100474

PATIENT
  Age: 26106 Day
  Sex: Female
  Weight: 45 kg

DRUGS (1)
  1. DAPAGLIFLOZIN [Suspect]
     Active Substance: DAPAGLIFLOZIN
     Indication: Diabetes mellitus
     Route: 048
     Dates: start: 20220711, end: 20230411

REACTIONS (3)
  - Marasmus [Recovering/Resolving]
  - Weight decreased [Recovering/Resolving]
  - Panic reaction [Unknown]

NARRATIVE: CASE EVENT DATE: 20230411
